FAERS Safety Report 6276408-9 (Version None)
Quarter: 2009Q3

REPORT INFORMATION
  Report Type: 
  Country: None (occurrence: None)
  Receive Date: 20090717
  Receipt Date: 20090717
  Transmission Date: 20100115
  Serious: Yes (Other)
  Sender: FDA-Public Use
  Company Number: None

PATIENT
  Age: 27 Year
  Sex: Female
  Weight: 65.7716 kg

DRUGS (1)
  1. FAMOTIDINE [Suspect]
     Indication: DUODENAL ULCER
     Dosage: 1 PILL TWICE DAILY PO
     Route: 048
     Dates: start: 20080904, end: 20080906

REACTIONS (1)
  - JAUNDICE [None]
